FAERS Safety Report 16297899 (Version 2)
Quarter: 2019Q2

REPORT INFORMATION
  Report Type: Report from Study
  Country: CO (occurrence: CO)
  Receive Date: 20190510
  Receipt Date: 20190514
  Transmission Date: 20190711
  Serious: Yes (Hospitalization)
  Sender: FDA-Public Use
  Company Number: CO-ASTRAZENECA-2019SE70131

PATIENT
  Age: 73 Day
  Sex: Male
  Weight: 3 kg

DRUGS (1)
  1. SYNAGIS [Suspect]
     Active Substance: PALIVIZUMAB
     Indication: PREMATURE BABY
     Route: 030
     Dates: start: 20190329, end: 20190329

REACTIONS (5)
  - Respiratory syncytial virus bronchiolitis [Recovering/Resolving]
  - Atelectasis [Unknown]
  - Pneumonia respiratory syncytial viral [Recovering/Resolving]
  - Anaemia [Recovering/Resolving]
  - Respiratory syncytial virus test positive [Unknown]

NARRATIVE: CASE EVENT DATE: 20190418
